FAERS Safety Report 4589355-5 (Version None)
Quarter: 2005Q1

REPORT INFORMATION
  Report Type: 
  Country: None (occurrence: None)
  Receive Date: 20050216
  Receipt Date: 20050216
  Transmission Date: 20050727
  Serious: Yes (Death, Life-Threatening, Disabling)
  Sender: FDA-Public Use
  Company Number: None

PATIENT
  Age: 81 Year
  Sex: Female
  Weight: 49.8957 kg

DRUGS (2)
  1. INTRON A [Suspect]
     Indication: METASTATIC NEOPLASM
     Dosage: 3X WEEK 3 MILLION IV / 0.2 ML SUBCLA USE
     Route: 042
     Dates: start: 20020702
  2. INTRON A [Suspect]
     Indication: RENAL CELL CARCINOMA STAGE UNSPECIFIED
     Dosage: 3X WEEK 3 MILLION IV / 0.2 ML SUBCLA USE
     Route: 042
     Dates: start: 20020702

REACTIONS (9)
  - AGITATION [None]
  - BLUNTED AFFECT [None]
  - DEMENTIA [None]
  - DISTURBANCE IN ATTENTION [None]
  - FATIGUE [None]
  - FEELING ABNORMAL [None]
  - IRRITABILITY [None]
  - ORAL INTAKE REDUCED [None]
  - TREATMENT NONCOMPLIANCE [None]
